FAERS Safety Report 4288232-7 (Version None)
Quarter: 2004Q1

REPORT INFORMATION
  Report Type: 
  Country: None (occurrence: None)
  Receive Date: 20040209
  Receipt Date: 20030910
  Transmission Date: 20041129
  Serious: No
  Sender: FDA-Public Use
  Company Number: US-GLAXOSMITHKLINE-A0425347A

PATIENT
  Age: 30 Year
  Sex: Female

DRUGS (4)
  1. PAXIL [Suspect]
     Dosage: 12.5MG AS REQUIRED
     Route: 048
     Dates: start: 20030827
  2. IRON [Concomitant]
  3. PRENATAL VITAMINS [Concomitant]
  4. HEPARIN [Concomitant]

REACTIONS (2)
  - ABDOMINAL PAIN [None]
  - MUSCLE CONTRACTIONS INVOLUNTARY [None]
